FAERS Safety Report 4832118-3 (Version None)
Quarter: 2005Q4

REPORT INFORMATION
  Report Type: 
  Country: None (occurrence: None)
  Receive Date: 20051114
  Receipt Date: 20051109
  Transmission Date: 20060501
  Serious: Yes (Other)
  Sender: FDA-Public Use
  Company Number: B0399505A

PATIENT
  Sex: Male

DRUGS (3)
  1. ZIDOVUDINE [Suspect]
     Indication: ANTIVIRAL PROPHYLAXIS
     Dosage: 250 MG / TWICE PER DAY / TRANSPLACENTAL
     Route: 064
  2. ZIDOVUDINE [Suspect]
     Indication: ANTIVIRAL PROPHYLAXIS
     Dosage: 4 MG/KG TRASNPLACENTARY
     Route: 064
  3. ZIDOVUDINE [Suspect]
     Dosage: 8 MG/KG / ORAL
     Route: 048

REACTIONS (18)
  - ANAEMIA NEONATAL [None]
  - BIOPSY MUSCLE ABNORMAL [None]
  - BRAIN DAMAGE [None]
  - CAESAREAN SECTION [None]
  - DRUG EXPOSURE DURING PREGNANCY [None]
  - DYSPRAXIA [None]
  - ERYTHROPOIESIS ABNORMAL [None]
  - EYE MOVEMENT DISORDER [None]
  - HYPERLACTACIDAEMIA [None]
  - HYPOTONIA NEONATAL [None]
  - INFANTILE APNOEIC ATTACK [None]
  - MITOCHONDRIAL DNA DEPLETION [None]
  - MUSCLE ATROPHY [None]
  - NEONATAL DISORDER [None]
  - NEONATAL TACHYPNOEA [None]
  - NEURODEVELOPMENTAL DISORDER [None]
  - PALLOR [None]
  - STRABISMUS [None]
